FAERS Safety Report 13337336 (Version 1)
Quarter: 2017Q1

REPORT INFORMATION
  Report Type: Spontaneous
  Country: US (occurrence: US)
  Receive Date: 20170314
  Receipt Date: 20170314
  Transmission Date: 20170428
  Serious: No
  Sender: FDA-Public Use
  Company Number: None

PATIENT
  Sex: Male

DRUGS (1)
  1. CAPECITABINE 500MG ACCORD [Suspect]
     Active Substance: CAPECITABINE
     Indication: LUNG NEOPLASM MALIGNANT
     Dosage: 2000MG BID FOR 14 DAYS ON, 7 DAYS OFF PO
     Route: 048
     Dates: start: 201702

REACTIONS (3)
  - Dry mouth [None]
  - Gastrooesophageal reflux disease [None]
  - Mouth ulceration [None]
